FAERS Safety Report 11158660 (Version 2)
Quarter: 2015Q3

REPORT INFORMATION
  Report Type: Spontaneous
  Country: US (occurrence: US)
  Receive Date: 20150603
  Receipt Date: 20150714
  Transmission Date: 20151125
  Serious: Yes (Other)
  Sender: FDA-Public Use
  Company Number: US-PFIZER INC-2015184336

PATIENT
  Sex: Female

DRUGS (1)
  1. EFFEXOR XR [Suspect]
     Active Substance: VENLAFAXINE HYDROCHLORIDE
     Dosage: 75 MG, DAILY

REACTIONS (4)
  - Weight increased [Recovering/Resolving]
  - Diabetes mellitus [Recovering/Resolving]
  - Drug withdrawal syndrome [Recovering/Resolving]
  - Paraesthesia [Recovering/Resolving]
